FAERS Safety Report 8602699 (Version 2)
Quarter: 2013Q3

REPORT INFORMATION
  Report Type: Report from Study
  Country: JP (occurrence: JP)
  Receive Date: 20120607
  Receipt Date: 20130919
  Transmission Date: 20140515
  Serious: Yes (Hospitalization)
  Sender: FDA-Public Use
  Company Number: JP-ELI_LILLY_AND_COMPANY-JP201205009936

PATIENT
  Age: 53 Year
  Sex: Female
  Weight: 53 kg

DRUGS (10)
  1. TADALAFIL [Suspect]
     Indication: PORTOPULMONARY HYPERTENSION
     Dosage: 20 MG, QD
     Route: 048
     Dates: start: 20120201, end: 20120423
  2. TADALAFIL [Suspect]
     Dosage: 10 MG, QD
     Route: 048
     Dates: start: 20120424, end: 20120518
  3. URSO [Concomitant]
     Indication: HEPATITIS C
     Dosage: UNK
     Route: 048
  4. MERCAZOLE [Concomitant]
     Indication: HYPERTHYROIDISM
     Dosage: UNK
     Route: 048
  5. LASIX [Concomitant]
     Indication: HEPATITIS C
     Dosage: UNK
     Route: 048
  6. PREDONINE [Concomitant]
     Indication: POLYMYOSITIS
     Dosage: UNK
     Route: 048
  7. PARIET [Concomitant]
     Indication: GASTROOESOPHAGEAL REFLUX DISEASE
     Dosage: UNK
     Route: 048
  8. TULOBUTEROL [Concomitant]
     Indication: ASTHMA
     Dosage: UNK
     Route: 062
  9. ACTONEL [Concomitant]
     Indication: OSTEOPOROSIS
     Dosage: 17.5 MG, WEEKLY (1/W)
     Route: 048
  10. OXYGEN [Concomitant]
     Dosage: UNK
     Route: 055

REACTIONS (2)
  - Hepatic function abnormal [Recovering/Resolving]
  - Pulmonary hypertension [Unknown]
